FAERS Safety Report 9771378 (Version 2)
Quarter: 2013Q4

REPORT INFORMATION
  Report Type: Spontaneous
  Country: DK (occurrence: DK)
  Receive Date: 20131218
  Receipt Date: 20131218
  Transmission Date: 20140711
  Serious: Yes (Hospitalization, Disabling, Other)
  Sender: FDA-Public Use
  Company Number: DK-GE HEALTHCARE MEDICAL DIAGNOSTICS-OSCN-NO-0901S-0034

PATIENT
  Age: 36 Year
  Sex: Female
  Weight: 45.5 kg

DRUGS (10)
  1. OMNISCAN [Suspect]
     Indication: PRODUCT USED FOR UNKNOWN INDICATION
     Route: 042
     Dates: start: 20011008, end: 20011008
  2. DOTAREM [Concomitant]
     Dates: start: 20030522, end: 20030522
  3. DOTAREM [Concomitant]
     Dates: start: 20070824, end: 20070824
  4. PROGRAF [Concomitant]
  5. PREDNISOLONE [Concomitant]
  6. IMUREL [Concomitant]
  7. CALCIUM CARBONATE [Concomitant]
  8. INSULIN [Concomitant]
  9. ETALPHA [Concomitant]
  10. FUROSEMIDE [Concomitant]

REACTIONS (1)
  - Nephrogenic systemic fibrosis [Not Recovered/Not Resolved]
